FAERS Safety Report 11772063 (Version 1)
Quarter: 2015Q4

REPORT INFORMATION
  Report Type: Report from Study
  Country: VE (occurrence: VE)
  Receive Date: 20151124
  Receipt Date: 20151124
  Transmission Date: 20160304
  Serious: Yes (Hospitalization)
  Sender: FDA-Public Use
  Company Number: PHHY2015VE150205

PATIENT
  Age: 67 Year
  Sex: Male

DRUGS (4)
  1. THALIDOMIDE [Concomitant]
     Active Substance: THALIDOMIDE
     Indication: BONE MARROW DISORDER
     Dosage: 100 MG, UNK
     Route: 065
     Dates: start: 2015
  2. DANAZOL. [Concomitant]
     Active Substance: DANAZOL
     Indication: BONE MARROW DISORDER
     Dosage: 200 MG, UNK
     Route: 065
     Dates: start: 2015
  3. ERYTHROPOIETIN [Concomitant]
     Active Substance: ERYTHROPOIETIN
     Indication: BONE MARROW DISORDER
     Dosage: 30000 U, UNK
     Route: 058
  4. EXJADE [Suspect]
     Active Substance: DEFERASIROX
     Indication: SICKLE CELL ANAEMIA
     Dosage: 500 MG, QD
     Route: 048
     Dates: start: 2015

REACTIONS (2)
  - Pulmonary oedema [Recovered/Resolved]
  - Respiratory failure [Recovered/Resolved]

NARRATIVE: CASE EVENT DATE: 20151028
